FAERS Safety Report 5975621-5 (Version None)
Quarter: 2008Q4

REPORT INFORMATION
  Report Type: 
  Country: None (occurrence: None)
  Receive Date: 20081128
  Receipt Date: 20081113
  Transmission Date: 20090506
  Serious: Yes (Other)
  Sender: FDA-Public Use
  Company Number: 8039718

PATIENT
  Age: 3 Year
  Sex: Female
  Weight: 11 kg

DRUGS (5)
  1. KEPPRA [Suspect]
     Indication: EPILEPSY
     Dosage: 300 MG 2/D PO
     Route: 048
  2. FENOBARBITAL [Concomitant]
  3. VALPROIC ACID [Concomitant]
  4. LAMOTRIGINE [Concomitant]
  5. CLOBAZAM [Concomitant]

REACTIONS (3)
  - DEPRESSED LEVEL OF CONSCIOUSNESS [None]
  - HYPOTONIA [None]
  - PERIPHERAL COLDNESS [None]
